FAERS Safety Report 7336531-4 (Version None)
Quarter: 2011Q1

REPORT INFORMATION
  Report Type: 
  Country: None (occurrence: None)
  Receive Date: 20110307
  Receipt Date: 20110224
  Transmission Date: 20110831
  Serious: Yes (Hospitalization)
  Sender: FDA-Public Use
  Company Number: US-US-EMD SERONO, INC.-7003106

PATIENT
  Sex: Female
  Weight: 77 kg

DRUGS (6)
  1. REBIF [Suspect]
     Indication: MULTIPLE SCLEROSIS
     Route: 058
     Dates: start: 20060411, end: 20100408
  2. SINGULAIR [Concomitant]
     Indication: HYPERSENSITIVITY
  3. FEXOFENADINE [Concomitant]
     Indication: HYPERSENSITIVITY
  4. ATIVAN [Concomitant]
     Indication: ANXIETY
  5. REBIF [Suspect]
     Route: 058
     Dates: start: 20100414
  6. ENABLEX [Concomitant]
     Indication: BLADDER DISORDER

REACTIONS (4)
  - APPENDICITIS PERFORATED [None]
  - MULTIPLE SCLEROSIS RELAPSE [None]
  - BREAST MASS [None]
  - FATIGUE [None]
